FAERS Safety Report 4356161-6 (Version None)
Quarter: 2004Q2

REPORT INFORMATION
  Report Type: 
  Country: None (occurrence: None)
  Receive Date: 20040506
  Receipt Date: 20040426
  Transmission Date: 20050107
  Serious: Yes (Hospitalization)
  Sender: FDA-Public Use
  Company Number: JP-JNJFOC-20040405441

PATIENT
  Age: 73 Year
  Sex: Male

DRUGS (3)
  1. REMICADE [Suspect]
     Indication: RHEUMATOID ARTHRITIS
     Dosage: IN 1 AS NECESSARY, INTRAVENOUS DRIP
     Route: 041
     Dates: start: 20040224, end: 20040224
  2. REMICADE [Suspect]
     Indication: RHEUMATOID ARTHRITIS
     Dosage: IN 1 AS NECESSARY, INTRAVENOUS DRIP
     Route: 041
     Dates: start: 20040311, end: 20040311
  3. METHOTREXATE [Suspect]
     Indication: DRUG USE FOR UNKNOWN INDICATION
     Dosage: 4 + 6 MG, IN 1 WEEK

REACTIONS (10)
  - CYTOMEGALOVIRUS INFECTION [None]
  - DRUG INTERACTION [None]
  - IMMUNOSUPPRESSION [None]
  - INTERSTITIAL LUNG DISEASE [None]
  - MARKEDLY REDUCED DIETARY INTAKE [None]
  - OPPORTUNISTIC INFECTION [None]
  - PNEUMOCYSTIS CARINII INFECTION [None]
  - PULMONARY FIBROSIS [None]
  - REFLUX OESOPHAGITIS [None]
  - RESPIRATORY DISTRESS [None]
